FAERS Safety Report 25006128 (Version 1)
Quarter: 2025Q1

REPORT INFORMATION
  Report Type: Spontaneous
  Country: IN (occurrence: IN)
  Receive Date: 20250224
  Receipt Date: 20250224
  Transmission Date: 20250409
  Serious: Yes (Other)
  Sender: PFIZER
  Company Number: IN-PFIZER INC-202500038610

PATIENT
  Age: 53 Year
  Sex: Male

DRUGS (3)
  1. LORLATINIB [Suspect]
     Active Substance: LORLATINIB
     Route: 048
  2. LORLATINIB [Suspect]
     Active Substance: LORLATINIB
     Dosage: 50 MG, 1X/DAY
     Route: 048
  3. LORLATINIB [Suspect]
     Active Substance: LORLATINIB
     Dosage: 100 MG, 1X/DAY
     Route: 048
     Dates: start: 20250201

REACTIONS (2)
  - Blood pressure systolic increased [Unknown]
  - Wrong technique in product usage process [Unknown]
